FAERS Safety Report 9254937 (Version 2)
Quarter: 2014Q1

REPORT INFORMATION
  Report Type: Spontaneous
  Country: US (occurrence: None)
  Receive Date: 20121203
  Receipt Date: 20130530
  Transmission Date: 20141002
  Serious: Yes (Other)
  Sender: FDA-Public Use
  Company Number: 1210USA001761

PATIENT
  Age: 81 Year
  Sex: Female
  Weight: 63.5 kg

DRUGS (13)
  1. JANUMET [Suspect]
     Indication: TYPE 2 DIABETES MELLITUS
     Route: 048
     Dates: start: 20110104, end: 20120802
  2. BYSTOLIC (NEBIBOLOL HYDROCHLORIDE) [Concomitant]
  3. LANOXIN (DIGOXIN) [Concomitant]
  4. HYDROCHLOROTHIAZIDE (+) LISINOPRIL (HYDROCHLOROTHIAZIDE, LISINOPRIL) [Concomitant]
  5. SYNTHROID (LEVOTHYROXINE SODIUM) [Concomitant]
  6. PROTONIX (PANTOPRAZOLE SODIUM) [Concomitant]
  7. TRICOR (FENOFIBRATE) (FENOFIBRATE) [Concomitant]
  8. ICAPS AREDS (ASCORBIC ACID (+) BETA CAROTENE (+) CUPRIC OXIDE (+) VITAMIN E ACETATE (+) ZINC OXIDE) [Concomitant]
  9. ASPIRIN (ASPIRIN) [Concomitant]
  10. PREMARIN (ESTROGENS, CONJUGATED) [Concomitant]
  11. FLORAJEN ACIDOPHILUS (LACTOBACILLUS ACIDOPHILUS) [Concomitant]
  12. LEVSIN (HYOSCYAMINE SULFATE) [Concomitant]
  13. PROMETHAZINE HYDROCHLORIDE (PROMETHAZINE HYDROCHLORIDE) [Concomitant]

REACTIONS (1)
  - Pancreatitis acute [None]
